FAERS Safety Report 10378557 (Version 1)
Quarter: 2014Q3

REPORT INFORMATION
  Report Type: Spontaneous
  Country: US (occurrence: None)
  Receive Date: 20140811
  Receipt Date: 20140811
  Transmission Date: 20150326
  Serious: Yes (Disabling, Other)
  Sender: FDA-Public Use
  Company Number: None

PATIENT
  Age: 56 Year
  Sex: Female
  Weight: 77.11 kg

DRUGS (3)
  1. CABERGOLINE. [Suspect]
     Active Substance: CABERGOLINE
     Indication: PITUITARY TUMOUR BENIGN
     Dosage: .5 TWICE WEEKLY 1/2 TWICE WEELY
  2. CABERGOLINE. [Suspect]
     Active Substance: CABERGOLINE
     Indication: BLOOD GROWTH HORMONE INCREASED
     Dosage: .5 TWICE WEEKLY 1/2 TWICE WEELY
  3. CABERGOLINE. [Suspect]
     Active Substance: CABERGOLINE
     Indication: ACROMEGALY
     Dosage: .5 TWICE WEEKLY 1/2 TWICE WEELY

REACTIONS (6)
  - Dyspepsia [None]
  - Vomiting [None]
  - Diarrhoea [None]
  - Blindness [None]
  - Cardiac disorder [None]
  - Renal pain [None]

NARRATIVE: CASE EVENT DATE: 20140704
